FAERS Safety Report 5586862-3 (Version None)
Quarter: 2008Q1

REPORT INFORMATION
  Report Type: 
  Country: None (occurrence: None)
  Receive Date: 20080110
  Receipt Date: 20070716
  Transmission Date: 20080703
  Serious: Yes (Other)
  Sender: FDA-Public Use
  Company Number: US-BRISTOL-MYERS SQUIBB COMPANY-13847280

PATIENT
  Sex: Male
  Weight: 71 kg

DRUGS (4)
  1. ERBITUX [Suspect]
     Indication: NEOPLASM MALIGNANT
     Route: 042
     Dates: start: 20070709
  2. CISPLATIN [Suspect]
  3. BENADRYL [Concomitant]
     Route: 048
  4. TYLENOL [Concomitant]
     Route: 048

REACTIONS (1)
  - BLOOD CREATININE INCREASED [None]
